FAERS Safety Report 13013561 (Version 2)
Quarter: 2016Q4

REPORT INFORMATION
  Report Type: Spontaneous
  Country: JP (occurrence: JP)
  Receive Date: 20161209
  Receipt Date: 20161217
  Transmission Date: 20170207
  Serious: Yes (Death)
  Sender: FDA-Public Use
  Company Number: JP-009507513-1612JPN003417

PATIENT
  Age: 69 Year
  Sex: Male
  Weight: 45 kg

DRUGS (12)
  1. LANSOPRAZOLE. [Concomitant]
     Active Substance: LANSOPRAZOLE
     Indication: GASTRITIS
  2. MOHRUS [Concomitant]
     Active Substance: KETOPROFEN
     Indication: MUSCULOSKELETAL PAIN
     Dosage: 20 MG, QD
     Route: 061
     Dates: start: 20161031
  3. ANORO ELLIPTA [Concomitant]
     Active Substance: UMECLIDINIUM BROMIDE\VILANTEROL TRIFENATATE
     Indication: CHRONIC OBSTRUCTIVE PULMONARY DISEASE
     Dosage: 1 DF, QD
     Route: 055
     Dates: start: 20151009
  4. TAZOPIPE [Concomitant]
     Active Substance: PIPERACILLIN SODIUM\TAZOBACTAM SODIUM
     Indication: PNEUMONIA
     Dosage: 4.5 G, TID
     Route: 042
     Dates: start: 20161031, end: 20161107
  5. TEPRENONE [Concomitant]
     Active Substance: TEPRENONE
     Indication: GASTRITIS
  6. CANCIDAS [Suspect]
     Active Substance: CASPOFUNGIN ACETATE
     Indication: ASPERGILLUS INFECTION
     Dosage: 70 MG, QD
     Route: 041
     Dates: start: 20161104, end: 20161104
  7. LANSOPRAZOLE. [Concomitant]
     Active Substance: LANSOPRAZOLE
     Indication: GASTRIC ULCER
     Dosage: 30 MG, QD
     Route: 048
     Dates: start: 20070820
  8. SLOW-K [Concomitant]
     Active Substance: POTASSIUM CHLORIDE
     Indication: HYPOKALAEMIA
     Dosage: 1.2 G, BID
     Route: 048
     Dates: start: 20161109, end: 20161116
  9. CANCIDAS [Suspect]
     Active Substance: CASPOFUNGIN ACETATE
     Indication: ASPERGILLUS INFECTION
     Dosage: 50 MG, QD
     Route: 041
     Dates: start: 20161105, end: 20161115
  10. CANCIDAS [Suspect]
     Active Substance: CASPOFUNGIN ACETATE
     Indication: LOWER RESPIRATORY TRACT INFECTION
  11. CANCIDAS [Suspect]
     Active Substance: CASPOFUNGIN ACETATE
     Indication: LOWER RESPIRATORY TRACT INFECTION
  12. TEPRENONE [Concomitant]
     Active Substance: TEPRENONE
     Indication: GASTRIC ULCER
     Dosage: 100 MG, BID
     Route: 048
     Dates: start: 20071213

REACTIONS (1)
  - Chronic obstructive pulmonary disease [Fatal]

NARRATIVE: CASE EVENT DATE: 20161114
